FAERS Safety Report 14649421 (Version 2)
Quarter: 2018Q2

REPORT INFORMATION
  Report Type: Spontaneous
  Country: US (occurrence: US)
  Receive Date: 20180316
  Receipt Date: 20180516
  Transmission Date: 20180711
  Serious: Yes (Hospitalization)
  Sender: FDA-Public Use
  Company Number: US-VIFOR (INTERNATIONAL) INC.-VIT-2018-02516

PATIENT
  Age: 91 Year
  Sex: Male

DRUGS (14)
  1. AMIODARONE HYDROCHLORIDE. [Concomitant]
     Active Substance: AMIODARONE HYDROCHLORIDE
  2. VELTASSA [Suspect]
     Active Substance: PATIROMER
     Indication: HYPERKALAEMIA
     Route: 048
     Dates: start: 20160420
  3. CARVEDILOL. [Concomitant]
     Active Substance: CARVEDILOL
  4. COQ 10 [Concomitant]
     Active Substance: UBIDECARENONE
  5. SPIRIVA RESPIMAT [Concomitant]
     Active Substance: TIOTROPIUM BROMIDE
  6. SPIRONOLACTONE. [Concomitant]
     Active Substance: SPIRONOLACTONE
  7. SIMVASTATIN. [Concomitant]
     Active Substance: SIMVASTATIN
  8. COLECALCIFEROL [Concomitant]
     Active Substance: CHOLECALCIFEROL
  9. MAGNESIUM CHLORIDE. [Concomitant]
     Active Substance: MAGNESIUM CHLORIDE
  10. RESTASIS [Concomitant]
     Active Substance: CYCLOSPORINE
  11. FLONASE [Concomitant]
     Active Substance: FLUTICASONE PROPIONATE
  12. FUROSEMIDE. [Concomitant]
     Active Substance: FUROSEMIDE
  13. ALLOPURINOL. [Concomitant]
     Active Substance: ALLOPURINOL
  14. ACETYLSALICYLIC ACID [Concomitant]
     Active Substance: ASPIRIN

REACTIONS (6)
  - Inappropriate schedule of drug administration [Unknown]
  - Asthenia [Not Recovered/Not Resolved]
  - Pleural effusion [Unknown]
  - Hospitalisation [Unknown]
  - Thrombosis [Unknown]
  - Gastroenteritis viral [Unknown]

NARRATIVE: CASE EVENT DATE: 20160420
